FAERS Safety Report 9304874 (Version 2)
Quarter: 2013Q2

REPORT INFORMATION
  Report Type: Spontaneous
  Country: DE (occurrence: DE)
  Receive Date: 20130523
  Receipt Date: 20130610
  Transmission Date: 20140414
  Serious: Yes (Hospitalization)
  Sender: FDA-Public Use
  Company Number: DE-009507513-1305DEU010409

PATIENT
  Age: 43 Year
  Sex: Female

DRUGS (3)
  1. MAXALT [Suspect]
     Indication: MIGRAINE
     Dosage: FREQUENCY: TWO TO THREE TIMES ONE TABLET A MONTH
     Route: 048
     Dates: end: 201303
  2. IBUPROFEN [Concomitant]
     Indication: MIGRAINE
     Dosage: 600 MG, PRN
  3. HORMONES (UNSPECIFIED) [Concomitant]
     Dosage: 1 DF, QD
     Route: 048

REACTIONS (2)
  - Intestinal ischaemia [Unknown]
  - Sigmoiditis [Recovered/Resolved]
